FAERS Safety Report 24642314 (Version 1)
Quarter: 2024Q4

REPORT INFORMATION
  Report Type: Spontaneous
  Country: US (occurrence: None)
  Receive Date: 20241119
  Receipt Date: 20241119
  Transmission Date: 20250115
  Serious: Yes (Other)
  Sender: Public
  Company Number: None

PATIENT
  Age: 63 Year
  Sex: Female

DRUGS (10)
  1. JAKAFI [Suspect]
     Active Substance: RUXOLITINIB
     Dosage: FREQUENCY : DAILY;?
  2. CYMBALTA [Concomitant]
     Active Substance: DULOXETINE HYDROCHLORIDE
     Dates: start: 20191125
  3. ALBUTEROL [Concomitant]
     Active Substance: ALBUTEROL
     Dates: start: 20191125
  4. ERGOCALCIFEROL [Concomitant]
     Active Substance: ERGOCALCIFEROL
     Dates: start: 20200123
  5. VITAMIN C [Concomitant]
     Active Substance: ASCORBIC ACID
     Dates: start: 20200123
  6. VITAMIN D3 [Concomitant]
     Active Substance: CHOLECALCIFEROL
     Dates: start: 20240904
  7. CALCIUM [Concomitant]
     Active Substance: CALCIUM
     Dates: start: 20240904
  8. GABAPTETIN [Concomitant]
     Dates: start: 20200123
  9. PROBIOTICS NOS [Concomitant]
     Active Substance: PROBIOTICS NOS
     Dates: start: 20240904
  10. VITAMINS [Concomitant]
     Active Substance: VITAMINS
     Dates: start: 20240904

REACTIONS (3)
  - Muscular weakness [None]
  - Muscle spasms [None]
  - Skin disorder [None]

NARRATIVE: CASE EVENT DATE: 20241119
